FAERS Safety Report 4930816-4 (Version None)
Quarter: 2006Q1

REPORT INFORMATION
  Report Type: 
  Country: None (occurrence: None)
  Receive Date: 20060227
  Receipt Date: 20060217
  Transmission Date: 20060701
  Serious: Yes (Hospitalization)
  Sender: FDA-Public Use
  Company Number: 2006015743

PATIENT
  Age: 80 Year
  Sex: Male

DRUGS (2)
  1. TAHOR (ATORVASTATIN) [Suspect]
     Indication: ILL-DEFINED DISORDER
     Dosage: ORAL
     Route: 048
     Dates: start: 20050928, end: 20051112
  2. PLAVIX [Concomitant]

REACTIONS (9)
  - ACUTE GENERALISED EXANTHEMATOUS PUSTULOSIS [None]
  - BETA HAEMOLYTIC STREPTOCOCCAL INFECTION [None]
  - PROTEUS INFECTION [None]
  - PURPURA [None]
  - RASH ERYTHEMATOUS [None]
  - RASH MACULO-PAPULAR [None]
  - RASH PUSTULAR [None]
  - STAPHYLOCOCCAL INFECTION [None]
  - TOXIC SKIN ERUPTION [None]
